FAERS Safety Report 20650959 (Version 1)
Quarter: 2022Q1

REPORT INFORMATION
  Report Type: Report from Study
  Country: FR (occurrence: None)
  Receive Date: 20220329
  Receipt Date: 20220329
  Transmission Date: 20220423
  Serious: Yes (Hospitalization)
  Sender: FDA-Public Use
  Company Number: FR-Merck Healthcare KGaA-9308328

PATIENT
  Sex: Female

DRUGS (1)
  1. EUTHYROX [Suspect]
     Active Substance: LEVOTHYROXINE SODIUM
     Indication: Product used for unknown indication

REACTIONS (7)
  - Dizziness [Unknown]
  - Abdominal pain upper [Unknown]
  - Arthralgia [Unknown]
  - Vomiting [Unknown]
  - Insomnia [Unknown]
  - Headache [Unknown]
  - Muscle spasms [Unknown]
